FAERS Safety Report 5914442-6 (Version None)
Quarter: 2008Q4

REPORT INFORMATION
  Report Type: 
  Country: None (occurrence: None)
  Receive Date: 20081009
  Receipt Date: 20080929
  Transmission Date: 20090506
  Serious: Yes (Death)
  Sender: FDA-Public Use
  Company Number: DE-GILEAD-2008-0018449

PATIENT
  Sex: Female

DRUGS (4)
  1. TRUVADA [Suspect]
     Route: 064
  2. PRESINOL [Suspect]
     Route: 064
  3. IRON [Suspect]
     Route: 064
  4. ZIDOVUDINE [Concomitant]
     Route: 064

REACTIONS (1)
  - SUDDEN INFANT DEATH SYNDROME [None]
